FAERS Safety Report 20748502 (Version 1)
Quarter: 2022Q2

REPORT INFORMATION
  Report Type: Spontaneous
  Country: US (occurrence: US)
  Receive Date: 20220426
  Receipt Date: 20220426
  Transmission Date: 20220720
  Serious: No
  Sender: FDA-Public Use
  Company Number: US-ORGANON-O2204USA001268

PATIENT
  Sex: Female
  Weight: 141.5 kg

DRUGS (1)
  1. NEXPLANON [Suspect]
     Active Substance: ETONOGESTREL
     Dosage: 1 IMPLANT IN LEFT ARM, 68 MG ONCE
     Route: 059
     Dates: start: 20210909, end: 20220330

REACTIONS (2)
  - Device breakage [Recovered/Resolved]
  - No adverse event [Unknown]
